FAERS Safety Report 4366393-9 (Version None)
Quarter: 2004Q2

REPORT INFORMATION
  Report Type: 
  Country: None (occurrence: None)
  Receive Date: 20040524
  Receipt Date: 20040511
  Transmission Date: 20050107
  Serious: Yes (Hospitalization)
  Sender: FDA-Public Use
  Company Number: 2003UW14115

PATIENT
  Age: 78 Year
  Sex: Male
  Weight: 71.5 kg

DRUGS (8)
  1. ZOLADEX [Suspect]
     Indication: PROSTATE CANCER
     Dosage: 10.8 MG Q3MO SQ
     Dates: start: 20020108, end: 20040107
  2. CASODEX [Suspect]
     Indication: PROSTATE CANCER
     Dosage: 50 MG QD PO
     Route: 048
     Dates: start: 20020102, end: 20020131
  3. ZOCOR [Concomitant]
  4. ALTACE [Concomitant]
  5. NOVOHYDRAZIDE [Concomitant]
  6. ASAPHEN [Concomitant]
  7. CELEBREX [Concomitant]
  8. PREVACID [Concomitant]

REACTIONS (7)
  - ABDOMINAL PAIN UPPER [None]
  - BILIARY COLIC [None]
  - CARDIAC STRESS TEST ABNORMAL [None]
  - CORONARY ARTERY ATHEROSCLEROSIS [None]
  - NAUSEA [None]
  - SUBILEUS [None]
  - VOMITING [None]
